FAERS Safety Report 7537742-5 (Version None)
Quarter: 2011Q2

REPORT INFORMATION
  Report Type: 
  Country: None (occurrence: None)
  Receive Date: 20110609
  Receipt Date: 20110607
  Transmission Date: 20111010
  Serious: Yes (Other)
  Sender: FDA-Public Use
  Company Number: US-PFIZER INC-2011124279

PATIENT
  Sex: Male
  Weight: 100 kg

DRUGS (3)
  1. LIPITOR [Suspect]
     Indication: HYPERLIPIDAEMIA
     Dosage: 20 MG, DAILY
     Route: 048
     Dates: end: 20110514
  2. VORICONAZOLE [Suspect]
     Indication: PULMONARY MYCOSIS
     Dosage: 300 MG, 2X/DAY
     Dates: start: 20110516
  3. MYCOPHENOLATE MOFETIL [Concomitant]
     Indication: HEART TRANSPLANT
     Dosage: 500 MG, 2X/DAY

REACTIONS (1)
  - ASPARTATE AMINOTRANSFERASE INCREASED [None]
